FAERS Safety Report 17039615 (Version 2)
Quarter: 2019Q4

REPORT INFORMATION
  Report Type: Report from Study
  Country: None (occurrence: IL)
  Receive Date: 20191115
  Receipt Date: 20191121
  Transmission Date: 20200122
  Serious: Yes (Death)
  Sender: FDA-Public Use
  Company Number: IL-ABBVIE-19K-082-3002042-00

PATIENT
  Sex: Male

DRUGS (1)
  1. DUODOPA [Suspect]
     Active Substance: CARBIDOPA\LEVODOPA
     Indication: PRODUCT USED FOR UNKNOWN INDICATION
     Dosage: CURRENT MORNING DOSE- 13 ML, CONTINUOUS RATE- 3.8 ML/ HOUR,??CURRENT EXTRA DOSE- 2.3 ML
     Route: 050
     Dates: start: 20171128

REACTIONS (5)
  - Aspiration [Fatal]
  - Device deployment issue [Unknown]
  - Cough [Fatal]
  - Sepsis [Fatal]
  - Large intestine perforation [Fatal]
